FAERS Safety Report 7836204-5 (Version None)
Quarter: 2011Q4

REPORT INFORMATION
  Report Type: 
  Country: None (occurrence: None)
  Receive Date: 20111024
  Receipt Date: 20101108
  Transmission Date: 20120403
  Serious: No
  Sender: FDA-Public Use
  Company Number: US-ABBOTT-10P-163-0684007-00

PATIENT
  Sex: Female

DRUGS (5)
  1. GONAL-F [Concomitant]
     Indication: PRODUCT USED FOR UNKNOWN INDICATION
  2. GANIRELIX ACETATE INJECTION [Concomitant]
     Indication: PRODUCT USED FOR UNKNOWN INDICATION
  3. LUPRON DEPOT [Suspect]
     Indication: PRODUCT USED FOR UNKNOWN INDICATION
     Dates: start: 20101025
  4. OVIDREL [Concomitant]
     Indication: PRODUCT USED FOR UNKNOWN INDICATION
  5. CLOMID [Concomitant]
     Indication: PRODUCT USED FOR UNKNOWN INDICATION

REACTIONS (3)
  - MOOD SWINGS [None]
  - HEADACHE [None]
  - DIZZINESS [None]
